FAERS Safety Report 5645836-4 (Version None)
Quarter: 2008Q1

REPORT INFORMATION
  Report Type: 
  Country: None (occurrence: None)
  Receive Date: 20080229
  Receipt Date: 20080229
  Transmission Date: 20080703
  Serious: Yes (Hospitalization)
  Sender: FDA-Public Use
  Company Number: FR-ABBOTT-08P-056-0432762-00

PATIENT
  Age: 49 Year
  Sex: Male

DRUGS (7)
  1. NORVIR [Suspect]
     Indication: HIV INFECTION
     Route: 048
     Dates: start: 20070802, end: 20070821
  2. TRUVADA [Interacting]
     Indication: HIV INFECTION
  3. ATAZANAVIR SULFATE [Interacting]
     Indication: DRUG USE FOR UNKNOWN INDICATION
     Route: 048
     Dates: start: 20070802, end: 20070821
  4. TACROLIMUS [Interacting]
     Indication: DRUG USE FOR UNKNOWN INDICATION
     Route: 048
     Dates: start: 20061017, end: 20070821
  5. ACETYLSALICYLATE LYSINE [Concomitant]
     Indication: ISCHAEMIC CEREBRAL INFARCTION
     Route: 048
  6. BUPRENORPHINE HCL [Concomitant]
     Indication: DRUG DEPENDENCE
     Route: 048
  7. URSODIOL [Concomitant]
     Indication: CHOLELITHIASIS

REACTIONS (2)
  - DRUG INTERACTION [None]
  - RENAL FAILURE ACUTE [None]
